FAERS Safety Report 18893397 (Version 1)
Quarter: 2021Q1

REPORT INFORMATION
  Report Type: Spontaneous
  Country: CN (occurrence: CN)
  Receive Date: 20210215
  Receipt Date: 20210215
  Transmission Date: 20210420
  Serious: Yes (Hospitalization, Disabling)
  Sender: FDA-Public Use
  Company Number: CN-ROCHE-2763872

PATIENT
  Age: 46 Year
  Sex: Female

DRUGS (3)
  1. CAPECITABINE. [Suspect]
     Active Substance: CAPECITABINE
     Indication: GALLBLADDER NEOPLASM
     Route: 048
     Dates: start: 20201118, end: 20201130
  2. LENVATINIB [Suspect]
     Active Substance: LENVATINIB
     Indication: GALLBLADDER NEOPLASM
     Route: 048
     Dates: start: 20200829, end: 20201006
  3. LENVATINIB [Suspect]
     Active Substance: LENVATINIB
     Route: 048
     Dates: start: 20201006, end: 20201111

REACTIONS (3)
  - Hepatic enzyme increased [Recovering/Resolving]
  - Intentional product use issue [Unknown]
  - Off label use [Unknown]

NARRATIVE: CASE EVENT DATE: 20210112
